FAERS Safety Report 17841427 (Version 2)
Quarter: 2020Q4

REPORT INFORMATION
  Report Type: Spontaneous
  Country: US (occurrence: US)
  Receive Date: 20200529
  Receipt Date: 20201013
  Transmission Date: 20210113
  Serious: Yes (Other)
  Sender: FDA-Public Use
  Company Number: US-GILEAD-2020-0468705

PATIENT
  Age: 69 Year
  Sex: Male
  Weight: 135.56 kg

DRUGS (20)
  1. METOPROLOL. [Concomitant]
     Active Substance: METOPROLOL
  2. CEFEPIME [Concomitant]
     Active Substance: CEFEPIME HYDROCHLORIDE
  3. ATORVASTATIN [Concomitant]
     Active Substance: ATORVASTATIN
  4. INSULIN ASPART [Concomitant]
     Active Substance: INSULIN ASPART
  5. NOREPINEPHRINE. [Concomitant]
     Active Substance: NOREPINEPHRINE
  6. ASPIRIN [ACETYLSALICYLIC ACID] [Concomitant]
     Active Substance: ASPIRIN
  7. VANCOMYCIN [Suspect]
     Active Substance: VANCOMYCIN
     Indication: PRODUCT USED FOR UNKNOWN INDICATION
     Route: 065
  8. FENTANYL. [Concomitant]
     Active Substance: FENTANYL
  9. ENOXAPARIN [Concomitant]
     Active Substance: ENOXAPARIN
  10. INSULIN GLARGINE [Concomitant]
     Active Substance: INSULIN GLARGINE
  11. FUROSEMIDE. [Concomitant]
     Active Substance: FUROSEMIDE
  12. CISATRACURIUM. [Concomitant]
     Active Substance: CISATRACURIUM
  13. METOLAZONE. [Concomitant]
     Active Substance: METOLAZONE
  14. PROPOFOL. [Concomitant]
     Active Substance: PROPOFOL
  15. TOCILIZUMAB. [Concomitant]
     Active Substance: TOCILIZUMAB
  16. DIGOXIN. [Concomitant]
     Active Substance: DIGOXIN
  17. REMDESIVIR. [Suspect]
     Active Substance: REMDESIVIR
     Indication: COVID-19
     Dosage: 100 MG, QD
     Route: 042
     Dates: start: 20200512, end: 20200519
  18. VASOPRESSIN. [Concomitant]
     Active Substance: VASOPRESSIN
  19. PANTOPRAZOLE [Concomitant]
     Active Substance: PANTOPRAZOLE
  20. MELATONIN [Concomitant]
     Active Substance: MELATONIN

REACTIONS (3)
  - Acute kidney injury [Unknown]
  - Blood creatinine increased [Unknown]
  - Blood urea increased [Unknown]

NARRATIVE: CASE EVENT DATE: 20200516
